FAERS Safety Report 9295719 (Version 1)
Quarter: 2013Q2

REPORT INFORMATION
  Report Type: Spontaneous
  Country: US (occurrence: US)
  Receive Date: 20130517
  Receipt Date: 20130517
  Transmission Date: 20140414
  Serious: Yes (Hospitalization)
  Sender: FDA-Public Use
  Company Number: US-BAYER-2013-060339

PATIENT
  Age: 33 Year
  Sex: Female
  Weight: 82.09 kg

DRUGS (6)
  1. YAZ [Suspect]
  2. YASMIN [Suspect]
  3. HYDROCODONE/ACETAMINOPHEN [Concomitant]
     Dosage: 5-500 MG
     Route: 048
     Dates: start: 20080507
  4. SINGULAIR [Concomitant]
  5. ZYRTEC [Concomitant]
  6. ALLERGY SHOT [Concomitant]
     Dosage: EVERY WEEK

REACTIONS (2)
  - Pulmonary embolism [None]
  - Deep vein thrombosis [None]
